FAERS Safety Report 16919486 (Version 1)
Quarter: 2019Q4

REPORT INFORMATION
  Report Type: Spontaneous
  Country: GB (occurrence: GB)
  Receive Date: 20191015
  Receipt Date: 20191015
  Transmission Date: 20200122
  Serious: Yes (Other)
  Sender: FDA-Public Use
  Company Number: GB-BAYER-2019-181102

PATIENT
  Age: 51 Year
  Sex: Female

DRUGS (3)
  1. CLENIL MODULITE [Concomitant]
     Active Substance: BECLOMETHASONE DIPROPIONATE
  2. MIRENA [Suspect]
     Active Substance: LEVONORGESTREL
     Indication: MENOPAUSAL SYMPTOMS
     Dosage: UNK
  3. VENLAFAXINE [Concomitant]
     Active Substance: VENLAFAXINE HYDROCHLORIDE

REACTIONS (3)
  - Fatigue [Not Recovered/Not Resolved]
  - Somnolence [Unknown]
  - Limb discomfort [Unknown]

NARRATIVE: CASE EVENT DATE: 20190914
